FAERS Safety Report 7341883-5 (Version None)
Quarter: 2011Q1

REPORT INFORMATION
  Report Type: 
  Country: None (occurrence: None)
  Receive Date: 20110309
  Receipt Date: 20101203
  Transmission Date: 20110831
  Serious: No
  Sender: FDA-Public Use
  Company Number: US-BAYER-2010-006046

PATIENT
  Sex: Female
  Weight: 66 kg

DRUGS (4)
  1. ALEVE (CAPLET) [Suspect]
  2. EVISTA [Concomitant]
  3. AMLODIPIN MESILATE [Concomitant]
  4. MAXZIDE [Concomitant]

REACTIONS (2)
  - NO ADVERSE EVENT [None]
  - INCORRECT DRUG ADMINISTRATION DURATION [None]
